FAERS Safety Report 14092196 (Version 2)
Quarter: 2018Q1

REPORT INFORMATION
  Report Type: Spontaneous
  Country: US (occurrence: US)
  Receive Date: 20171016
  Receipt Date: 20180228
  Transmission Date: 20180508
  Serious: No
  Sender: FDA-Public Use
  Company Number: US-PFIZER INC-2017445777

PATIENT
  Age: 55 Year
  Sex: Female

DRUGS (1)
  1. METHOTREXATE SODIUM. [Suspect]
     Active Substance: METHOTREXATE SODIUM
     Dosage: 25 MG/ML, WEEKLY (REMOVE NEEDLE AFTER FILLING SYRINGE AND THEN PUSH INTO MOUTH)
     Route: 048

REACTIONS (4)
  - Limb discomfort [Unknown]
  - Fatigue [Unknown]
  - Product use issue [Unknown]
  - Feeling abnormal [Unknown]
